FAERS Safety Report 9602105 (Version 1)
Quarter: 2013Q4

REPORT INFORMATION
  Report Type: Spontaneous
  Country: FR (occurrence: None)
  Receive Date: 20131002
  Receipt Date: 20131002
  Transmission Date: 20140711
  Serious: Yes (Other)
  Sender: FDA-Public Use
  Company Number: FK201304358

PATIENT
  Age: 51 Year
  Sex: Female

DRUGS (4)
  1. ACICLOVIR (MANUFACTURER UNKNOWN) (ACICLOVIR) (ACICLOVIR) [Suspect]
     Indication: PRODUCT USED FOR UNKNOWN INDICATION
  2. VANCOMYCIN (MANUFACTURER UNKNOWN) (VANCOMYCIN) (VANCOMYCIN) [Suspect]
     Indication: PRODUCT USED FOR UNKNOWN INDICATION
  3. PANTOPRAZOLE INJECTION (MANUFACTURER UNKNOWN) (PANTOPRAZOLE) (PANTOPRAZOLE) [Suspect]
     Indication: PRODUCT USED FOR UNKNOWN INDICATION
  4. IMIPENEM/CILASTATIN (MANUFACTURER UNKNOWN) (IMIPENEM/CILASTATIN) (IMIPENEM/CILASTATIN) [Suspect]
     Indication: PRODUCT USED FOR UNKNOWN INDICATION

REACTIONS (1)
  - Drug reaction with eosinophilia and systemic symptoms [None]
